FAERS Safety Report 6005854-3 (Version None)
Quarter: 2008Q4

REPORT INFORMATION
  Report Type: 
  Country: None (occurrence: None)
  Receive Date: 20081217
  Receipt Date: 20081202
  Transmission Date: 20090506
  Serious: Yes (Hospitalization)
  Sender: FDA-Public Use
  Company Number: US-BAYER-200839577NA

PATIENT
  Age: 53 Year
  Sex: Male

DRUGS (38)
  1. CAMPATH [Suspect]
     Indication: CHRONIC LYMPHOCYTIC LEUKAEMIA
     Dosage: TOTAL DAILY DOSE: 30 MG
     Route: 058
     Dates: start: 20080630, end: 20080801
  2. CAMPATH [Suspect]
     Dosage: TOTAL DAILY DOSE: 30 MG
     Route: 058
     Dates: start: 20081024, end: 20081029
  3. CAMPATH [Suspect]
     Dosage: TOTAL DAILY DOSE: 30 MG
     Route: 058
     Dates: start: 20080905, end: 20080915
  4. PREDNISONE TAB [Concomitant]
     Dosage: TOTAL DAILY DOSE: 20 MG
     Route: 048
  5. FAMVIR [Concomitant]
     Dates: start: 20081114
  6. IBUPROFEN [Concomitant]
  7. TYLENOL (CAPLET) [Concomitant]
  8. DAPSONE [Concomitant]
     Dosage: TOTAL DAILY DOSE: 100 MG
     Route: 048
     Dates: start: 20081118, end: 20081119
  9. FERROUS SULFATE TAB [Concomitant]
     Dosage: TOTAL DAILY DOSE: 650 MG
     Route: 048
  10. PERCOCET [Concomitant]
  11. COUMADIN [Concomitant]
     Dosage: TOTAL DAILY DOSE: 2.5 MG
     Route: 048
     Dates: end: 20081114
  12. PEPCID [Concomitant]
     Dates: start: 20081118, end: 20081125
  13. AMPHOTERICIN B [Concomitant]
     Dosage: TOTAL DAILY DOSE: 480 MG
     Route: 042
     Dates: start: 20081129, end: 20081201
  14. AZITHROMYCIN [Concomitant]
     Dosage: TOTAL DAILY DOSE: 500 MG
     Route: 042
     Dates: start: 20081119, end: 20081201
  15. CLINDAMYCIN HCL [Concomitant]
     Dosage: TOTAL DAILY DOSE: 1800 MG
     Route: 042
     Dates: start: 20081119, end: 20081121
  16. DARAPRIM [Concomitant]
     Dosage: TOTAL DAILY DOSE: 400 MG
     Route: 048
     Dates: start: 20081126, end: 20081128
  17. GANCICLOVIR [Concomitant]
     Dosage: TOTAL DAILY DOSE: 400 MG
     Route: 042
     Dates: start: 20081119, end: 20081126
  18. HEPARIN [Concomitant]
     Dosage: TOTAL DAILY DOSE: 5000 U
     Route: 058
     Dates: start: 20081119, end: 20081120
  19. IMIPENEM/CILLASTATIN [Concomitant]
  20. LASIX [Concomitant]
     Dosage: TOTAL DAILY DOSE: 40 MG
     Route: 042
     Dates: start: 20081121, end: 20081201
  21. LEUCOVORIN CALCIUM [Concomitant]
     Dosage: TOTAL DAILY DOSE: 5 MG
     Route: 048
     Dates: start: 20081126
  22. METOPROLOL TARTRATE [Concomitant]
     Dosage: TOTAL DAILY DOSE: 50 MG
     Route: 048
     Dates: start: 20081124, end: 20081201
  23. POTASSIUM CHLORIDE [Concomitant]
     Dates: start: 20081119, end: 20081202
  24. TRYPSIN-BALSAM-CASTOR OIL [Concomitant]
     Dates: start: 20081118
  25. ALBENZA [Concomitant]
     Dosage: TOTAL DAILY DOSE: 400 MG
     Dates: start: 20081121, end: 20081121
  26. CALCIUM CHLORIDE [Concomitant]
     Dosage: TOTAL DAILY DOSE: 1 G
     Route: 042
     Dates: start: 20081121, end: 20081121
  27. CALCIUM GLUCONATE [Concomitant]
     Dosage: TOTAL DAILY DOSE: 1 G
     Route: 042
     Dates: start: 20081121, end: 20081121
  28. METRONIDAZOLE [Concomitant]
     Dosage: TOTAL DAILY DOSE: 2250 MG
     Route: 042
     Dates: start: 20081120, end: 20081121
  29. PHYTONADIONE [Concomitant]
     Dosage: TOTAL DAILY DOSE: 10 MG
     Route: 042
     Dates: start: 20081121, end: 20081121
  30. PIPERACILLIN SODIUM AND TAZOBACTAM SODIUM [Concomitant]
     Dosage: TOTAL DAILY DOSE: 13.5 G
     Route: 042
     Dates: start: 20081118, end: 20081124
  31. PRIMAQUINE [Concomitant]
     Dosage: TOTAL DAILY DOSE: 52.6 MG
     Route: 048
     Dates: start: 20081119, end: 20081121
  32. SPORANOX [Concomitant]
     Dosage: TOTAL DAILY DOSE: 400 MG
     Route: 048
     Dates: start: 20081126, end: 20081129
  33. SOLU-CORTEF [Concomitant]
     Dosage: TOTAL DAILY DOSE: 200 MG
     Route: 042
     Dates: start: 20081119, end: 20081125
  34. TOBRAMYCIN [Concomitant]
     Dosage: TOTAL DAILY DOSE: 170 MG
     Route: 042
     Dates: start: 20081119, end: 20081119
  35. VALCYTE [Concomitant]
     Dosage: TOTAL DAILY DOSE: 900 MG
     Route: 048
     Dates: start: 20081118, end: 20081119
  36. VORICONAZOLE [Concomitant]
     Dosage: TOTAL DAILY DOSE: 700 MG
     Route: 042
     Dates: start: 20081121, end: 20081126
  37. SODIUM BICARBONATE [Concomitant]
     Dosage: TOTAL DAILY DOSE: 100 MEQ
     Route: 042
     Dates: start: 20081121, end: 20081121
  38. TERRAMYCIN V CAP [Concomitant]
     Dates: end: 20081119

REACTIONS (3)
  - PNEUMONIA [None]
  - RENAL FAILURE ACUTE [None]
  - SEPTIC SHOCK [None]
